FAERS Safety Report 15209275 (Version 5)
Quarter: 2018Q4

REPORT INFORMATION
  Report Type: Spontaneous
  Country: ES (occurrence: ES)
  Receive Date: 20180727
  Receipt Date: 20180903
  Transmission Date: 20190204
  Serious: Yes (Hospitalization)
  Sender: FDA-Public Use
  Company Number: ES-TEVA-2018-ES-930239

PATIENT
  Age: 81 Year
  Sex: Female

DRUGS (7)
  1. OMEPRAZOL 20 MG CAPSULES [Concomitant]
     Indication: DYSPEPSIA
  2. CAPTOPRIL 50 MG COMPRIMIDO [Suspect]
     Active Substance: CAPTOPRIL
     Indication: HYPERTENSION
     Route: 048
     Dates: start: 20171020, end: 20180225
  3. DILUTOL HTA 2,5 MG COMPRIMIDOS [Suspect]
     Active Substance: TORSEMIDE
     Indication: HYPERTENSION
     Dosage: 1 DOSAGE FORMS DAILY;
     Route: 048
     Dates: start: 20171211, end: 20180225
  4. ACID ACETYLSALICYLIC 300 MG 30 TABLETS [Concomitant]
     Indication: ESSENTIAL HYPERTENSION
     Dosage: 1 DOSAGE FORMS DAILY;
     Route: 048
     Dates: start: 20151215
  5. ATORVASTATINA 20 MG COMPRIMIDO [Concomitant]
     Active Substance: ATORVASTATIN
     Indication: METABOLIC DISORDER
     Dosage: 20 MILLIGRAM DAILY;
     Route: 048
     Dates: start: 20120704
  6. CYANOCOBALAMIN + FOLIC ACID [Concomitant]
     Active Substance: CYANOCOBALAMIN\FOLIC ACID
     Indication: VITAMIN D DECREASED
     Dosage: 1 COMP. 2/400 MCG /24 HORAS
     Route: 048
     Dates: start: 20170916
  7. CHOLECALCIFEROL 10,000 UI/ML ORAL DROPS SOLUTION/SUSPENSION [Concomitant]
     Indication: VITAMIN D DEFICIENCY
     Dosage: 1600 IU (INTERNATIONAL UNIT) DAILY;
     Route: 048
     Dates: start: 20161202

REACTIONS (4)
  - Confusional state [Recovered/Resolved]
  - Somnolence [Recovered/Resolved]
  - Disorientation [Recovered/Resolved]
  - Hyponatraemia [Recovered/Resolved]

NARRATIVE: CASE EVENT DATE: 20180226
